FAERS Safety Report 7129783-7 (Version None)
Quarter: 2010Q4

REPORT INFORMATION
  Report Type: 
  Country: None (occurrence: None)
  Receive Date: 20101130
  Receipt Date: 20101110
  Transmission Date: 20110411
  Serious: Yes (Other)
  Sender: FDA-Public Use
  Company Number: US-AMGEN-USASP2010003515

PATIENT

DRUGS (1)
  1. NPLATE [Suspect]
     Indication: IDIOPATHIC THROMBOCYTOPENIC PURPURA
     Dosage: 300 A?G, QD
     Route: 058
     Dates: start: 20100626, end: 20100812

REACTIONS (4)
  - CONTUSION [None]
  - EPISTAXIS [None]
  - EVANS SYNDROME [None]
  - THERAPEUTIC RESPONSE DECREASED [None]
